FAERS Safety Report 10507265 (Version 1)
Quarter: 2014Q4

REPORT INFORMATION
  Report Type: Spontaneous
  Country: US (occurrence: None)
  Receive Date: 20141008
  Receipt Date: 20141008
  Transmission Date: 20150528
  Serious: Yes (Other)
  Sender: FDA-Public Use
  Company Number: None

PATIENT
  Age: 64 Year
  Sex: Female
  Weight: 88.45 kg

DRUGS (1)
  1. DULOXETINE 60 MG TEVA [Suspect]
     Active Substance: DULOXETINE
     Indication: PAIN MANAGEMENT
     Dosage: EVERYDAY, INDEFINITELY?1 CAPSULE, ONCE DAILY, TAKEN BY MOUTH
     Route: 048

REACTIONS (9)
  - Product substitution issue [None]
  - Pain [None]
  - Fatigue [None]
  - Therapeutic response changed [None]
  - Dizziness [None]
  - Depression [None]
  - Drug ineffective [None]
  - Headache [None]
  - Crying [None]

NARRATIVE: CASE EVENT DATE: 20141006
